FAERS Safety Report 17571120 (Version 1)
Quarter: 2020Q1

REPORT INFORMATION
  Report Type: Spontaneous
  Country: NL (occurrence: GB)
  Receive Date: 20200323
  Receipt Date: 20200323
  Transmission Date: 20200409
  Serious: Yes (Life-Threatening)
  Sender: FDA-Public Use
  Company Number: GB-FRESENIUS KABI-FK202002651

PATIENT
  Age: 17 Month
  Sex: Male
  Weight: 7 kg

DRUGS (2)
  1. KETAMINE [Concomitant]
     Active Substance: KETAMINE
     Indication: INDUCTION OF ANAESTHESIA
     Route: 065
  2. ROCURONIUM [Suspect]
     Active Substance: ROCURONIUM BROMIDE
     Indication: INDUCTION OF ANAESTHESIA
     Route: 042
     Dates: start: 20200210, end: 20200210

REACTIONS (2)
  - Cardiac arrest [Recovered/Resolved]
  - Anaphylactic reaction [Recovered/Resolved]

NARRATIVE: CASE EVENT DATE: 20200210
